FAERS Safety Report 5991369-5 (Version None)
Quarter: 2008Q4

REPORT INFORMATION
  Report Type: 
  Country: None (occurrence: None)
  Receive Date: 20081202
  Receipt Date: 20071029
  Transmission Date: 20090506
  Serious: Yes (Other)
  Sender: FDA-Public Use
  Company Number: WAES 0703USA04627

PATIENT
  Age: 62 Year
  Sex: Female
  Weight: 44.9061 kg

DRUGS (6)
  1. FOSAMAX [Suspect]
     Indication: OSTEOPENIA
     Dosage: 70 MG/WKY/PO
     Route: 048
     Dates: start: 20040811, end: 20070201
  2. FOSAMAX [Suspect]
     Indication: OSTEOPOROSIS
     Dosage: 70 MG/WKY/PO
     Route: 048
     Dates: start: 20040811, end: 20070201
  3. ALEVE [Concomitant]
  4. LIPITOR [Concomitant]
  5. ZOCOR [Concomitant]
  6. VITAMINS (UNSPECIFIED) [Concomitant]

REACTIONS (3)
  - ABDOMINAL DISCOMFORT [None]
  - OSTEOMYELITIS [None]
  - OSTEONECROSIS [None]
